FAERS Safety Report 10373595 (Version 1)
Quarter: 2014Q3

REPORT INFORMATION
  Report Type: Report from Study
  Country: CA (occurrence: CA)
  Receive Date: 20140808
  Receipt Date: 20140808
  Transmission Date: 20150326
  Serious: Yes (Death, Hospitalization)
  Sender: FDA-Public Use
  Company Number: CA-JNJFOC-20140802523

PATIENT
  Age: 52 Year
  Sex: Female

DRUGS (3)
  1. ACETAMINOPHEN. [Suspect]
     Active Substance: ACETAMINOPHEN
     Route: 065
  2. ACETAMINOPHEN. [Suspect]
     Active Substance: ACETAMINOPHEN
     Indication: PRODUCT USED FOR UNKNOWN INDICATION
     Dosage: OVERTIME
     Route: 065
     Dates: start: 20090522, end: 20090524
  3. ETHANOL [Concomitant]
     Active Substance: ALCOHOL
     Indication: PRODUCT USED FOR UNKNOWN INDICATION
     Route: 065

REACTIONS (5)
  - Encephalopathy [Fatal]
  - Hypotension [Fatal]
  - Overdose [Fatal]
  - Alcohol use [Fatal]
  - Brain oedema [Fatal]

NARRATIVE: CASE EVENT DATE: 20090524
